FAERS Safety Report 13540971 (Version 3)
Quarter: 2017Q3

REPORT INFORMATION
  Report Type: Report from Study
  Country: US (occurrence: US)
  Receive Date: 20170512
  Receipt Date: 20170728
  Transmission Date: 20171127
  Serious: Yes (Hospitalization)
  Sender: FDA-Public Use
  Company Number: US-ASTRAZENECA-2017SE50257

PATIENT
  Age: 20292 Day
  Sex: Male
  Weight: 85.2 kg

DRUGS (4)
  1. ZANTAC [Concomitant]
     Active Substance: RANITIDINE HYDROCHLORIDE
     Route: 065
     Dates: start: 20170126, end: 20170503
  2. BIFIDOBACTERIUM LACTIS [Concomitant]
     Active Substance: BIFIDOBACTERIUM ANIMALIS LACTIS
     Route: 065
     Dates: start: 20160126, end: 20170503
  3. MEDI-4736 [Suspect]
     Active Substance: DURVALUMAB
     Indication: MALIGNANT MELANOMA
     Route: 042
     Dates: start: 20161208, end: 20170504
  4. INCB024360 [Suspect]
     Active Substance: EPACADOSTAT
     Indication: MALIGNANT MELANOMA
     Route: 048
     Dates: start: 20161208, end: 20170503

REACTIONS (1)
  - Transient ischaemic attack [Recovered/Resolved]

NARRATIVE: CASE EVENT DATE: 20170503
